FAERS Safety Report 7959267-5 (Version None)
Quarter: 2011Q4

REPORT INFORMATION
  Report Type: 
  Country: None (occurrence: None)
  Receive Date: 20111206
  Receipt Date: 20110510
  Transmission Date: 20120403
  Serious: No
  Sender: FDA-Public Use
  Company Number: US-ABBOTT-11P-163-0706344-00

PATIENT
  Age: 18 Month
  Sex: Male

DRUGS (1)
  1. OMNICEF [Suspect]
     Indication: EAR INFECTION
     Dosage: 125MG/5ML, 1 IN 1 DAY
     Dates: start: 20110101

REACTIONS (2)
  - EAR INFECTION [None]
  - DRUG INEFFECTIVE [None]
